FAERS Safety Report 11839959 (Version 1)
Quarter: 2015Q4

REPORT INFORMATION
  Report Type: Spontaneous
  Country: GB (occurrence: GB)
  Receive Date: 20151216
  Receipt Date: 20151216
  Transmission Date: 20160305
  Serious: Yes (Other)
  Sender: FDA-Public Use
  Company Number: GB-ACTAVIS-2015-27671

PATIENT
  Age: 51 Year
  Sex: Male
  Weight: 94.79 kg

DRUGS (1)
  1. TRAMADOL (UNKNOWN) [Suspect]
     Active Substance: TRAMADOL
     Indication: SCIATICA
     Dosage: 100 MG, UNKNOWN
     Route: 048
     Dates: start: 20151201, end: 20151201

REACTIONS (5)
  - Fatigue [Recovered/Resolved]
  - Dizziness [Recovered/Resolved]
  - Nausea [Recovered/Resolved]
  - Hyperhidrosis [Recovered/Resolved]
  - Vomiting [Recovered/Resolved]
